FAERS Safety Report 19220415 (Version 1)
Quarter: 2021Q2

REPORT INFORMATION
  Report Type: Spontaneous
  Country: GB (occurrence: GB)
  Receive Date: 20210506
  Receipt Date: 20210506
  Transmission Date: 20210717
  Serious: Yes (Hospitalization, Congenital Anomaly, Other)
  Sender: FDA-Public Use
  Company Number: GB-TEVA-2021-GB-1907044

PATIENT
  Age: 30 Year
  Sex: Female

DRUGS (3)
  1. LOPERAMIDE [Suspect]
     Active Substance: LOPERAMIDE
     Indication: DRUG ABUSE
     Dosage: 100 MILLIGRAM DAILY;
     Route: 065
  2. LOPERAMIDE [Suspect]
     Active Substance: LOPERAMIDE
     Indication: INTENTIONAL OVERDOSE
  3. METHYLPHENIDATE. [Concomitant]
     Active Substance: METHYLPHENIDATE
     Indication: PRODUCT USED FOR UNKNOWN INDICATION
     Route: 065

REACTIONS (9)
  - Long QT syndrome congenital [Recovering/Resolving]
  - Arrhythmia [Unknown]
  - Intentional overdose [Unknown]
  - Condition aggravated [Recovering/Resolving]
  - Heart disease congenital [Unknown]
  - Anxiety [Recovering/Resolving]
  - Drug abuse [Unknown]
  - Drug withdrawal syndrome [Recovering/Resolving]
  - Unmasking of previously unidentified disease [Unknown]
